FAERS Safety Report 9174839 (Version 1)
Quarter: 2013Q1

REPORT INFORMATION
  Report Type: Spontaneous
  Country: US (occurrence: US)
  Receive Date: 20130320
  Receipt Date: 20130320
  Transmission Date: 20140127
  Serious: No
  Sender: FDA-Public Use
  Company Number: US-009507513-1303USA009141

PATIENT
  Sex: Male

DRUGS (4)
  1. COSOPT PF [Suspect]
     Indication: GLAUCOMA
     Route: 047
  2. TRAVATAN [Concomitant]
  3. ISOPTO PLAIN [Concomitant]
  4. ALPHAGAN [Concomitant]

REACTIONS (3)
  - Rash [Not Recovered/Not Resolved]
  - Lip swelling [Not Recovered/Not Resolved]
  - Urticaria [Not Recovered/Not Resolved]
